FAERS Safety Report 15418216 (Version 2)
Quarter: 2018Q4

REPORT INFORMATION
  Report Type: Spontaneous
  Country: FR (occurrence: FR)
  Receive Date: 20180924
  Receipt Date: 20181001
  Transmission Date: 20190204
  Serious: Yes (Death)
  Sender: FDA-Public Use
  Company Number: FR-PFIZER INC-2018377946

PATIENT
  Age: 49 Year
  Sex: Female

DRUGS (15)
  1. DOXORUBICIN HCL [Suspect]
     Active Substance: DOXORUBICIN HYDROCHLORIDE
     Indication: LARGE GRANULAR LYMPHOCYTOSIS
     Dosage: UNK
  2. METHOTREXATE SODIUM. [Suspect]
     Active Substance: METHOTREXATE SODIUM
     Indication: LARGE GRANULAR LYMPHOCYTOSIS
     Dosage: UNK
  3. DEXAMETHASONE. [Suspect]
     Active Substance: DEXAMETHASONE
     Indication: LARGE GRANULAR LYMPHOCYTOSIS
     Dosage: UNK
  4. ETOPOSIDE. [Suspect]
     Active Substance: ETOPOSIDE
     Indication: LARGE GRANULAR LYMPHOCYTOSIS
     Dosage: UNK
  5. CISPLATIN. [Suspect]
     Active Substance: CISPLATIN
     Dosage: UNK
  6. FLUDARABINE PHOSPHATE. [Suspect]
     Active Substance: FLUDARABINE PHOSPHATE
     Dosage: UNK
  7. PREDNISONE. [Suspect]
     Active Substance: PREDNISONE
     Indication: LARGE GRANULAR LYMPHOCYTOSIS
     Dosage: UNK
  8. MELPHALAN. [Suspect]
     Active Substance: MELPHALAN
     Indication: BONE MARROW CONDITIONING REGIMEN
     Dosage: UNK
  9. MECHLORETHAMINE [Suspect]
     Active Substance: MECHLORETHAMINE
     Indication: LARGE GRANULAR LYMPHOCYTOSIS
     Dosage: UNK
  10. CYTARABINE. [Suspect]
     Active Substance: CYTARABINE
     Indication: LARGE GRANULAR LYMPHOCYTOSIS
     Dosage: UNK
  11. VINCRISTINE SULFATE. [Suspect]
     Active Substance: VINCRISTINE SULFATE
     Indication: LARGE GRANULAR LYMPHOCYTOSIS
     Dosage: UNK
  12. ALEMTUZUMAB [Suspect]
     Active Substance: ALEMTUZUMAB
     Indication: LARGE GRANULAR LYMPHOCYTOSIS
     Dosage: UNK
  13. CYCLOPHOSPHAMIDE. [Suspect]
     Active Substance: CYCLOPHOSPHAMIDE
     Indication: LARGE GRANULAR LYMPHOCYTOSIS
     Dosage: UNK
  14. PROCARBAZINE [Suspect]
     Active Substance: PROCARBAZINE
     Indication: LARGE GRANULAR LYMPHOCYTOSIS
     Dosage: UNK
  15. PREDNISOLONE. [Suspect]
     Active Substance: PREDNISOLONE
     Indication: LARGE GRANULAR LYMPHOCYTOSIS
     Dosage: UNK

REACTIONS (1)
  - Infection [Fatal]
